FAERS Safety Report 4747820-1 (Version None)
Quarter: 2005Q3

REPORT INFORMATION
  Report Type: 
  Country: None (occurrence: None)
  Receive Date: 20050818
  Receipt Date: 20050808
  Transmission Date: 20060218
  Serious: Yes (Hospitalization)
  Sender: FDA-Public Use
  Company Number: CA-JNJFOC-20050706029

PATIENT
  Sex: Female
  Weight: 59.6 kg

DRUGS (21)
  1. REMICADE [Suspect]
     Route: 042
  2. REMICADE [Suspect]
     Route: 042
  3. REMICADE [Suspect]
     Indication: ANKYLOSING SPONDYLITIS
     Route: 042
  4. CALCIUM GLUCONATE [Concomitant]
     Indication: NUTRITIONAL SUPPORT
     Route: 048
  5. FOSAMAX [Concomitant]
     Indication: NUTRITIONAL SUPPORT
     Route: 048
  6. FERROUS SULFATE TAB [Concomitant]
     Indication: NUTRITIONAL SUPPORT
     Route: 048
  7. ALBUTEROL SULFATE HFA [Concomitant]
     Indication: ASTHMA
     Route: 055
  8. VITAMIN E [Concomitant]
     Indication: DRY SKIN
     Route: 061
  9. NAPROXEN [Concomitant]
     Indication: ANKYLOSING SPONDYLITIS
     Route: 048
  10. VALPROIC ACID [Concomitant]
     Indication: CONVULSION
     Route: 048
  11. VALPROIC ACID [Concomitant]
     Route: 048
  12. NEXIUM [Concomitant]
     Indication: GASTROINTESTINAL DISORDER THERAPY
     Route: 048
  13. METHOTREXATE [Concomitant]
     Indication: ANKYLOSING SPONDYLITIS
     Route: 058
  14. HYDROMORPHCONTIN [Concomitant]
     Indication: ANKYLOSING SPONDYLITIS
     Route: 048
  15. CALCIPOTRIENE [Concomitant]
     Indication: ANKYLOSING SPONDYLITIS
     Route: 061
  16. PREDNISONE [Concomitant]
     Indication: ANKYLOSING SPONDYLITIS
     Route: 048
  17. FOLIC ACID [Concomitant]
     Dosage: 5 MG 6/7 DAYS
     Route: 048
  18. DILAUDID [Concomitant]
     Indication: PAIN
     Route: 048
  19. SERAX [Concomitant]
     Route: 048
  20. DILANTIN [Concomitant]
     Indication: CONVULSION
  21. CELEXA [Concomitant]
     Indication: DEPRESSION

REACTIONS (4)
  - DYSPNOEA [None]
  - FEELING ABNORMAL [None]
  - HERPES SIMPLEX [None]
  - VOMITING [None]
